FAERS Safety Report 11870800 (Version 1)
Quarter: 2015Q4

REPORT INFORMATION
  Report Type: Spontaneous
  Country: US (occurrence: None)
  Receive Date: 20151224
  Receipt Date: 20151224
  Transmission Date: 20160305
  Serious: Yes (Hospitalization)
  Sender: FDA-Public Use
  Company Number: None

PATIENT
  Age: 36 Year
  Sex: Female

DRUGS (6)
  1. HYDROMORPHONE [Concomitant]
     Active Substance: HYDROMORPHONE
  2. PROTAMINE [Suspect]
     Active Substance: PROTAMINE
     Indication: PRODUCT USED FOR UNKNOWN INDICATION
     Route: 042
     Dates: start: 20150707, end: 20150707
  3. OXYCODONE [Concomitant]
     Active Substance: OXYCODONE
  4. LIDOCAINE. [Concomitant]
     Active Substance: LIDOCAINE
  5. SENNA [Concomitant]
     Active Substance: SENNA LEAF\SENNOSIDES\SENNOSIDES A AND B
  6. TEMAZEPAM. [Concomitant]
     Active Substance: TEMAZEPAM

REACTIONS (6)
  - Hypotension [None]
  - Hemiparesis [None]
  - Gaze palsy [None]
  - VIIth nerve paralysis [None]
  - Anaphylactic reaction [None]
  - Asthenia [None]

NARRATIVE: CASE EVENT DATE: 20150707
